FAERS Safety Report 5301200-9 (Version None)
Quarter: 2007Q2

REPORT INFORMATION
  Report Type: 
  Country: None (occurrence: None)
  Receive Date: 20070411
  Receipt Date: 20070329
  Transmission Date: 20071010
  Serious: Yes (Life-Threatening, Hospitalization)
  Sender: FDA-Public Use
  Company Number: 2007SP005849

PATIENT
  Age: 43 Year
  Sex: Male
  Weight: 73 kg

DRUGS (4)
  1. VIRAFERONPEG [Suspect]
     Indication: HEPATITIS C
     Dosage: 109 MCG; QW; SC
     Route: 058
     Dates: start: 20070126, end: 20070310
  2. REBETOL [Suspect]
     Indication: HEPATITIS C
     Dosage: 1000 MG; QD; PO
     Route: 048
     Dates: start: 20070126, end: 20070310
  3. EQUANIL [Concomitant]
  4. ATARAX [Concomitant]

REACTIONS (2)
  - COMA [None]
  - SUICIDE ATTEMPT [None]
